FAERS Safety Report 9371619 (Version 1)
Quarter: 2013Q2

REPORT INFORMATION
  Report Type: Spontaneous
  Country: FR (occurrence: FR)
  Receive Date: 20130627
  Receipt Date: 20130627
  Transmission Date: 20140414
  Serious: Yes (Death)
  Sender: FDA-Public Use
  Company Number: PHHY2013FR065360

PATIENT
  Age: 80 Year
  Sex: Male

DRUGS (9)
  1. EXFORGE [Suspect]
     Dosage: 1 DF, QD
     Route: 048
     Dates: end: 20110922
  2. SIMVASTATIN [Suspect]
     Dosage: 20 MG, QD
     Route: 048
     Dates: end: 20110922
  3. PREVISCAN [Suspect]
     Indication: ARRHYTHMIA
     Dosage: UNK UKN, UNK
     Route: 048
     Dates: start: 20110902, end: 20110922
  4. CARDENSIEL [Suspect]
     Dosage: 2.5 MG, BID
     Route: 048
     Dates: end: 20110922
  5. AMAREL [Suspect]
     Dosage: 3 MG, QD
     Route: 048
     Dates: end: 20110922
  6. DECAPEPTYL [Suspect]
     Dosage: 1 DF, EVERY 3 MONTHS
     Route: 030
     Dates: end: 20110922
  7. MECIR [Suspect]
     Dosage: 0.4 MG, QD
     Route: 048
     Dates: end: 20110922
  8. XALATAN [Suspect]
     Dosage: 1 DF, QD
     Route: 047
     Dates: end: 20110922
  9. INSULIN [Suspect]
     Dosage: UNK UKN, UNK
     Route: 058

REACTIONS (3)
  - Cerebral haematoma [Fatal]
  - Hemiplegia [Fatal]
  - Coma [Fatal]
